FAERS Safety Report 7474417-5 (Version None)
Quarter: 2011Q2

REPORT INFORMATION
  Report Type: 
  Country: None (occurrence: None)
  Receive Date: 20110512
  Receipt Date: 20110301
  Transmission Date: 20111010
  Serious: No
  Sender: FDA-Public Use
  Company Number: US-BAYER-2011-019604

PATIENT
  Age: 34 Year
  Sex: Female

DRUGS (2)
  1. COPAXONE [Concomitant]
  2. AVELOX [Suspect]
     Indication: BRONCHITIS
     Dosage: 400 MG, QD
     Route: 048
     Dates: start: 20110227

REACTIONS (5)
  - ARTHRALGIA [None]
  - DRY MOUTH [None]
  - MYALGIA [None]
  - ADVERSE DRUG REACTION [None]
  - ABDOMINAL PAIN UPPER [None]
